FAERS Safety Report 5510953-6 (Version None)
Quarter: 2007Q4

REPORT INFORMATION
  Report Type: 
  Country: None (occurrence: None)
  Receive Date: 20071109
  Receipt Date: 20071105
  Transmission Date: 20080405
  Serious: Yes (Life-Threatening)
  Sender: FDA-Public Use
  Company Number: PHBS2007JP18524

PATIENT
  Age: 94 Year
  Sex: Female

DRUGS (1)
  1. TEGRETOL [Suspect]
     Indication: INTERCOSTAL NEURALGIA
     Dosage: 200 MG, BID
     Route: 048
     Dates: start: 20071019, end: 20071020

REACTIONS (3)
  - BRADYCARDIA [None]
  - DIZZINESS [None]
  - HEPATORENAL SYNDROME [None]
